FAERS Safety Report 21387288 (Version 3)
Quarter: 2022Q4

REPORT INFORMATION
  Report Type: Spontaneous
  Country: US (occurrence: US)
  Receive Date: 20220928
  Receipt Date: 20221010
  Transmission Date: 20230113
  Serious: No
  Sender: FDA-Public Use
  Company Number: US-LUPIN PHARMACEUTICALS INC.-2022-11366

PATIENT
  Sex: Male

DRUGS (1)
  1. ALBUTEROL SULFATE [Suspect]
     Active Substance: ALBUTEROL SULFATE
     Indication: Product used for unknown indication
     Dosage: UNK EVERY 04-HOURS (2 PUFFS IN MORNING LUNCH HOUR AND ABOUT BED TIME)

REACTIONS (3)
  - Therapeutic product ineffective [Unknown]
  - Wrong technique in product usage process [Unknown]
  - Product taste abnormal [Unknown]
